FAERS Safety Report 8210021-9 (Version None)
Quarter: 2012Q1

REPORT INFORMATION
  Report Type: 
  Country: None (occurrence: None)
  Receive Date: 20120314
  Receipt Date: 20110426
  Transmission Date: 20120608
  Serious: No
  Sender: FDA-Public Use
  Company Number: US-ASTRAZENECA-2011SE10709

PATIENT
  Age: 74 Year
  Sex: Female
  Weight: 95.3 kg

DRUGS (6)
  1. PREMARIN [Concomitant]
  2. DIOVAN [Concomitant]
     Dosage: 160/25 DAILY
  3. ETODOKIC [Concomitant]
  4. FUROSEMIDE [Concomitant]
  5. GABAPENTIN [Concomitant]
  6. TOPROL-XL [Suspect]
     Indication: HYPERTENSION
     Dosage: TWO TIMES A DAY, TOTAL DAILY DOSE-100 MG
     Route: 048
     Dates: start: 20110131, end: 20110201

REACTIONS (5)
  - DRUG HYPERSENSITIVITY [None]
  - URTICARIA [None]
  - RASH [None]
  - PALPITATIONS [None]
  - LIP SWELLING [None]
